FAERS Safety Report 18853032 (Version 3)
Quarter: 2021Q3

REPORT INFORMATION
  Report Type: Report from Study
  Country: GB (occurrence: GB)
  Receive Date: 20210205
  Receipt Date: 20210920
  Transmission Date: 20211014
  Serious: Yes (Other)
  Sender: FDA-Public Use
  Company Number: NVSC2020GB116642

PATIENT
  Age: 71 Year
  Sex: Female

DRUGS (4)
  1. SANDOSTATIN LAR DEPOT [Suspect]
     Active Substance: OCTREOTIDE ACETATE
     Indication: NEUROENDOCRINE TUMOUR
     Dosage: 30 MG, Q3W (EVERY 21 DAYS)
     Route: 030
     Dates: start: 20190101
  2. SANDOSTATIN LAR DEPOT [Suspect]
     Active Substance: OCTREOTIDE ACETATE
     Dosage: 30 MG, Q3W (EVERY 21 DAYS)
     Route: 030
     Dates: start: 201901
  3. SANDOSTATIN LAR DEPOT [Suspect]
     Active Substance: OCTREOTIDE ACETATE
     Dosage: 30 MG, Q3W (EVERY 21 DAYS)
     Route: 030
     Dates: start: 20190123
  4. SANDOSTATIN LAR DEPOT [Suspect]
     Active Substance: OCTREOTIDE ACETATE
     Dosage: 30 MG, Q3W (EVERY 21 DAYS)
     Route: 030
     Dates: start: 20190101

REACTIONS (15)
  - Vitamin B complex deficiency [Unknown]
  - Needle issue [Recovered/Resolved]
  - Pain in extremity [Unknown]
  - Joint swelling [Not Recovered/Not Resolved]
  - Inappropriate schedule of product administration [Unknown]
  - Malignant neoplasm progression [Unknown]
  - Peripheral swelling [Unknown]
  - Urinary tract infection [Recovering/Resolving]
  - Spinal pain [Recovering/Resolving]
  - Cardiac failure [Unknown]
  - Haemoglobin decreased [Unknown]
  - Dry mouth [Unknown]
  - Vision blurred [Unknown]
  - Neuroendocrine tumour [Unknown]
  - Pruritus [Not Recovered/Not Resolved]

NARRATIVE: CASE EVENT DATE: 20200428
